FAERS Safety Report 8428679-8 (Version None)
Quarter: 2012Q2

REPORT INFORMATION
  Report Type: 
  Country: None (occurrence: None)
  Receive Date: 20120606
  Receipt Date: 20120525
  Transmission Date: 20120825
  Serious: Yes (Death)
  Sender: FDA-Public Use
  Company Number: UTC-018856

PATIENT
  Age: 54 Year
  Sex: Female
  Weight: 117.7 kg

DRUGS (1)
  1. REMODULIN [Suspect]
     Indication: PULMONARY ARTERIAL HYPERTENSION
     Dosage: 10.8 UG/KG (0.0075 UG/KG, 1 IN 1 MIN), SUBCUTANEOUS
     Route: 058
     Dates: start: 20120423

REACTIONS (1)
  - DEATH [None]
